FAERS Safety Report 9447634 (Version 2)
Quarter: 2013Q3

REPORT INFORMATION
  Report Type: Spontaneous
  Country: DE (occurrence: DE)
  Receive Date: 20130805
  Receipt Date: 20130816
  Transmission Date: 20140515
  Serious: Yes (Hospitalization)
  Sender: FDA-Public Use
  Company Number: UTC-035875

PATIENT
  Age: 45 Year
  Sex: Female
  Weight: 67.8 kg

DRUGS (18)
  1. REMODULIN (INJECTION FOR INFUSION) (TREPROSTINIL SODIUM) [Suspect]
     Indication: PRODUCT USED FOR UNKNOWN INDICATION
     Dosage: (0.016 UG/KG, 1 IN 1 MIN)
     Route: 058
  2. REVATIO (SILDENAFIL CITRATE) (UNKNOWN) (SILDENAFIL) [Concomitant]
  3. TRACLEER (BOSENTAN) [Concomitant]
  4. FORMOTEROL [Concomitant]
  5. VENATVIS (ILOPROST) [Concomitant]
  6. NOVOPULMO (BUDESONIDE) [Concomitant]
  7. SALBUTAMOL [Concomitant]
  8. ENALAPRIL [Concomitant]
  9. FUROSEMIDE [Concomitant]
  10. AQUAPHOR (XIPAMIDE) [Concomitant]
  11. ALDACTONE (SPIRONOLACTONE) [Concomitant]
  12. KALINOR BT (POTASSIUM CHLORIDE) [Concomitant]
  13. L-THYROXIN (LEVOTHYROXINE SODIUM) [Concomitant]
  14. MARCUMAR (PHENPROCOUMON) [Concomitant]
  15. FENISTIL (DIMETINDENE MALEATE)(CAPSULE) [Concomitant]
  16. PREDNISOLONE [Concomitant]
  17. KALINOR (POTASSIUM CHLORIDE)(CAPSULES) [Concomitant]
  18. OXYGEN [Concomitant]

REACTIONS (1)
  - Drug hypersensitivity [None]
